FAERS Safety Report 9468121 (Version 1)
Quarter: 2013Q3

REPORT INFORMATION
  Report Type: Spontaneous
  Country: US (occurrence: US)
  Receive Date: 20130821
  Receipt Date: 20130821
  Transmission Date: 20140515
  Serious: No
  Sender: FDA-Public Use
  Company Number: US-009507513-1308USA000737

PATIENT
  Age: 86 Year
  Sex: Female

DRUGS (1)
  1. NASONEX [Suspect]
     Route: 045

REACTIONS (2)
  - Tremor [Unknown]
  - Psychomotor skills impaired [Unknown]
